FAERS Safety Report 23285216 (Version 2)
Quarter: 2024Q1

REPORT INFORMATION
  Report Type: Spontaneous
  Country: US (occurrence: None)
  Receive Date: 20231211
  Receipt Date: 20240104
  Transmission Date: 20240410
  Serious: Yes (Other)
  Sender: FDA-Public Use
  Company Number: 2023A276540

PATIENT
  Age: 30317 Day
  Sex: Male
  Weight: 80.3 kg

DRUGS (2)
  1. FARXIGA [Suspect]
     Active Substance: DAPAGLIFLOZIN PROPANEDIOL
     Indication: Diabetic nephropathy
     Route: 048
     Dates: start: 20230903, end: 20230920
  2. FARXIGA [Suspect]
     Active Substance: DAPAGLIFLOZIN PROPANEDIOL
     Indication: Diabetes mellitus
     Route: 048
     Dates: start: 20230903, end: 20230920

REACTIONS (5)
  - Chronic kidney disease [Not Recovered/Not Resolved]
  - Urine flow decreased [Unknown]
  - Cardiac disorder [Unknown]
  - Genital infection [Not Recovered/Not Resolved]
  - Urinary tract infection [Recovered/Resolved]

NARRATIVE: CASE EVENT DATE: 20230920
